FAERS Safety Report 13150397 (Version 1)
Quarter: 2017Q1

REPORT INFORMATION
  Report Type: Spontaneous
  Country: FR (occurrence: FR)
  Receive Date: 20170125
  Receipt Date: 20170125
  Transmission Date: 20170428
  Serious: Yes (Death, Other)
  Sender: FDA-Public Use
  Company Number: FR-APOTEX-2017AP005989

PATIENT
  Age: 4 Year
  Sex: Male

DRUGS (8)
  1. METHYLPREDNISOLONE. [Concomitant]
     Active Substance: METHYLPREDNISOLONE
     Indication: IMMUNOSUPPRESSION
  2. SULFAMETHIZOLE W/TRIMETHOPRIM [Suspect]
     Active Substance: SULFAMETHOXAZOLE\TRIMETHOPRIM
     Indication: PRODUCT USED FOR UNKNOWN INDICATION
     Route: 065
  3. TACROLIMUS. [Concomitant]
     Active Substance: TACROLIMUS
     Indication: IMMUNOSUPPRESSION
     Route: 065
  4. METHYLPREDNISOLONE. [Concomitant]
     Active Substance: METHYLPREDNISOLONE
     Indication: HUMAN HERPESVIRUS 6 INFECTION
     Route: 065
  5. BASILIXIMAB [Concomitant]
     Active Substance: BASILIXIMAB
     Indication: IMMUNOSUPPRESSION
     Route: 065
  6. ACICLOVIR APOTEX [Suspect]
     Active Substance: ACYCLOVIR
     Dosage: UNK
     Route: 065
  7. MYCOPHENOLATE [Concomitant]
     Active Substance: MYCOPHENOLIC ACID
     Indication: IMMUNOSUPPRESSION
     Route: 065
  8. ACICLOVIR APOTEX [Suspect]
     Active Substance: ACYCLOVIR
     Indication: HERPES VIRUS INFECTION
     Dosage: UNK
     Route: 065

REACTIONS (22)
  - Alopecia [None]
  - Madarosis [None]
  - Ulcerative keratitis [None]
  - Rash papulosquamous [None]
  - Liver transplant [None]
  - Pancreas transplant [None]
  - Organ transplant [None]
  - Lichenoid keratosis [None]
  - Hyperkeratosis [None]
  - Sudden death [None]
  - Adverse drug reaction [Unknown]
  - Chronic graft versus host disease [None]
  - Xerophthalmia [None]
  - Pseudomonas infection [Fatal]
  - Human herpesvirus 6 infection [Unknown]
  - Rash [None]
  - Dermatitis exfoliative [None]
  - Hepatic enzyme increased [None]
  - Pseudomonal bacteraemia [None]
  - Graft versus host disease [Unknown]
  - Eosinophilia [None]
  - Small intestine transplant [None]
